FAERS Safety Report 4667396-7 (Version None)
Quarter: 2005Q2

REPORT INFORMATION
  Report Type: 
  Country: None (occurrence: None)
  Receive Date: 20050519
  Receipt Date: 20050519
  Transmission Date: 20051028
  Serious: Yes (Hospitalization)
  Sender: FDA-Public Use
  Company Number: None

PATIENT
  Age: 79 Year
  Sex: Female
  Weight: 59.4212 kg

DRUGS (1)
  1. DEPAKOTE [Suspect]
     Indication: ACUTE MYELOID LEUKAEMIA
     Dosage: 60MG/KG/DAY ORAL
     Route: 048
     Dates: start: 20050307

REACTIONS (9)
  - ACUTE PROMYELOCYTIC LEUKAEMIA [None]
  - BACTERAEMIA [None]
  - CONFUSIONAL STATE [None]
  - DRUG LEVEL BELOW THERAPEUTIC [None]
  - PYREXIA [None]
  - SEDATION [None]
  - SKIN LESION [None]
  - SOMNOLENCE [None]
  - WHITE BLOOD CELL COUNT DECREASED [None]
